FAERS Safety Report 6231877-5 (Version None)
Quarter: 2009Q2

REPORT INFORMATION
  Report Type: 
  Country: None (occurrence: None)
  Receive Date: 20090612
  Receipt Date: 20090612
  Transmission Date: 20091009
  Serious: Yes (Life-Threatening)
  Sender: FDA-Public Use
  Company Number: None

PATIENT
  Age: 35 Year
  Sex: Male
  Weight: 90.7194 kg

DRUGS (2)
  1. DETROL LA [Suspect]
     Indication: HYPERTONIC BLADDER
     Dosage: 4MG DAILY PO
     Route: 048
     Dates: start: 20090123, end: 20090228
  2. DETROL LA [Suspect]
     Indication: NEUROGENIC BLADDER
     Dosage: 4MG DAILY PO
     Route: 048
     Dates: start: 20090123, end: 20090228

REACTIONS (2)
  - LOSS OF CONSCIOUSNESS [None]
  - PRURITUS [None]
